FAERS Safety Report 5853432-9 (Version None)
Quarter: 2008Q3

REPORT INFORMATION
  Report Type: 
  Country: None (occurrence: None)
  Receive Date: 20080820
  Receipt Date: 20080805
  Transmission Date: 20090109
  Serious: Yes (Hospitalization)
  Sender: FDA-Public Use
  Company Number: DSA_32067_2008

PATIENT
  Sex: Female

DRUGS (2)
  1. LORAZEPAM [Suspect]
     Dosage: 25 MG 1X  NOT THE PRESCRIVED AMOUNT ORAL
     Route: 048
     Dates: start: 20080621, end: 20080621
  2. ATENOLOL [Suspect]
     Dosage: 2000 MG 1X NOT PRESCRIBED AMOUNT ORAL
     Route: 048
     Dates: start: 20080621, end: 20080621

REACTIONS (4)
  - HYPOGLYCAEMIA [None]
  - MULTIPLE DRUG OVERDOSE INTENTIONAL [None]
  - SOMNOLENCE [None]
  - SUICIDE ATTEMPT [None]
